FAERS Safety Report 10574139 (Version 1)
Quarter: 2014Q4

REPORT INFORMATION
  Report Type: Spontaneous
  Country: BR (occurrence: BR)
  Receive Date: 20141110
  Receipt Date: 20141110
  Transmission Date: 20150529
  Serious: Yes (Other)
  Sender: FDA-Public Use
  Company Number: BR-ELI_LILLY_AND_COMPANY-BR201410011909

PATIENT
  Age: 63 Year
  Sex: Male
  Weight: 62.8 kg

DRUGS (5)
  1. GEMZAR [Suspect]
     Active Substance: GEMCITABINE HYDROCHLORIDE
     Indication: METASTATIC NEOPLASM
     Dosage: 1620 MG, UNKNOWN
     Route: 042
     Dates: start: 20140917, end: 20140917
  2. DEXAMETASONA                       /00016001/ [Concomitant]
     Indication: METASTATIC NEOPLASM
     Dosage: 8 MG, UNKNOWN
     Route: 042
  3. CISPLATINA [Concomitant]
     Active Substance: CISPLATIN
     Indication: METASTATIC NEOPLASM
     Dosage: 40.5 MG, UNKNOWN
     Route: 042
  4. ONDANSETRON [Concomitant]
     Active Substance: ONDANSETRON
     Indication: METASTATIC NEOPLASM
     Dosage: 8 MG, UNKNOWN
     Route: 042
  5. DIPYRONE [Concomitant]
     Active Substance: DIPYRONE
     Dosage: UNK, UNKNOWN
     Route: 065

REACTIONS (4)
  - Hypertension [Recovered/Resolved]
  - Nausea [Recovered/Resolved]
  - Back pain [Recovered/Resolved]
  - Chest pain [Recovered/Resolved]

NARRATIVE: CASE EVENT DATE: 20140917
